FAERS Safety Report 25706420 (Version 1)
Quarter: 2025Q3

REPORT INFORMATION
  Report Type: Spontaneous
  Country: US (occurrence: US)
  Receive Date: 20250820
  Receipt Date: 20250820
  Transmission Date: 20251021
  Serious: No
  Sender: ELI LILLY AND COMPANY
  Company Number: US-ELI_LILLY_AND_COMPANY-US202508017055

PATIENT
  Age: 47 Year
  Sex: Female

DRUGS (4)
  1. ZEPBOUND [Suspect]
     Active Substance: TIRZEPATIDE
     Indication: Menopausal symptoms
     Route: 058
     Dates: start: 20250726
  2. ZEPBOUND [Suspect]
     Active Substance: TIRZEPATIDE
     Indication: Menopausal symptoms
     Route: 058
     Dates: start: 20250726
  3. ZEPBOUND [Suspect]
     Active Substance: TIRZEPATIDE
     Indication: Menopausal symptoms
     Route: 058
     Dates: start: 20250726
  4. ZEPBOUND [Suspect]
     Active Substance: TIRZEPATIDE
     Indication: Menopausal symptoms
     Route: 058
     Dates: start: 20250726

REACTIONS (3)
  - Off label use [Unknown]
  - Incorrect dose administered [Unknown]
  - Injection site haemorrhage [Recovered/Resolved]

NARRATIVE: CASE EVENT DATE: 20250726
